FAERS Safety Report 17940499 (Version 2)
Quarter: 2022Q1

REPORT INFORMATION
  Report Type: Spontaneous
  Country: US (occurrence: US)
  Receive Date: 20200625
  Receipt Date: 20220317
  Transmission Date: 20220423
  Serious: Yes (Death, Other)
  Sender: FDA-Public Use
  Company Number: US-SAARTEMIS-SAC202006190182

PATIENT
  Age: 62 Year
  Sex: Female

DRUGS (1)
  1. ZANTAC [Suspect]
     Active Substance: RANITIDINE HYDROCHLORIDE
     Indication: Gastrooesophageal reflux disease
     Dosage: 150 MG, QD
     Dates: start: 200801, end: 201512

REACTIONS (5)
  - Oesophageal carcinoma [Fatal]
  - Disease progression [Fatal]
  - Hepatic cancer stage IV [Not Recovered/Not Resolved]
  - Pancreatic carcinoma [Not Recovered/Not Resolved]
  - Gastric cancer stage IV [Not Recovered/Not Resolved]

NARRATIVE: CASE EVENT DATE: 20151001
